FAERS Safety Report 4365178-7 (Version None)
Quarter: 2004Q2

REPORT INFORMATION
  Report Type: 
  Country: None (occurrence: None)
  Receive Date: 20040521
  Receipt Date: 20040511
  Transmission Date: 20050107
  Serious: Yes (Hospitalization)
  Sender: FDA-Public Use
  Company Number: A02200401599

PATIENT
  Age: 65 Year
  Sex: Female

DRUGS (6)
  1. STILNOX (ZOLPIDEM) - TABLET - 10 MG [Suspect]
     Dosage: 10 MG OD
     Route: 048
     Dates: start: 20031222
  2. LEXOMIL - (BROMAZEPAM) - TABLET - 6 MG [Suspect]
     Dosage: 6 MG OD
     Route: 048
     Dates: start: 20031222
  3. OMEPRAZOLE [Suspect]
     Dosage: 20 MG OD
     Route: 048
     Dates: start: 20031214
  4. NICARDIPINE HCL [Suspect]
     Indication: HYPERTENSION
     Dosage: 20 MG OD
     Route: 048
     Dates: start: 20040101
  5. TAZOCILLINE - (PIPERACILLINE/TAZOBACTAM) - SOLUTION - 4 G [Suspect]
     Indication: PERITONITIS
     Dosage: 4 G QID
     Route: 042
     Dates: start: 20031205
  6. PROZAC [Suspect]
     Route: 048
     Dates: start: 20031224

REACTIONS (7)
  - CHOLESTASIS [None]
  - EOSINOPHILIA [None]
  - ERYTHEMA MULTIFORME [None]
  - HENOCH-SCHONLEIN PURPURA [None]
  - LYMPHADENOPATHY [None]
  - PRURITUS [None]
  - PYREXIA [None]
